FAERS Safety Report 6603590-3 (Version None)
Quarter: 2010Q1

REPORT INFORMATION
  Report Type: 
  Country: None (occurrence: None)
  Receive Date: 20100226
  Receipt Date: 20091104
  Transmission Date: 20100710
  Serious: No
  Sender: FDA-Public Use
  Company Number: A0815061A

PATIENT
  Age: 56 Year
  Sex: Male

DRUGS (5)
  1. VALTREX [Suspect]
     Dosage: 1G PER DAY
     Route: 048
     Dates: start: 20091103
  2. DEPAKOTE ER [Concomitant]
  3. PROTONIX [Concomitant]
  4. LIMBREL [Concomitant]
  5. SYNTHROID [Concomitant]

REACTIONS (5)
  - AGITATION [None]
  - HEART RATE INCREASED [None]
  - INSOMNIA [None]
  - NERVOUSNESS [None]
  - RESPIRATORY RATE INCREASED [None]
